FAERS Safety Report 10484083 (Version 1)
Quarter: 2014Q3

REPORT INFORMATION
  Report Type: Spontaneous
  Country: US (occurrence: None)
  Receive Date: 20140925
  Receipt Date: 20140925
  Transmission Date: 20150326
  Serious: Yes (Other)
  Sender: FDA-Public Use
  Company Number: 2012SP003090

PATIENT
  Age: 61 Year
  Sex: Female
  Weight: 70.3 kg

DRUGS (4)
  1. MOBIC (METOXICAM) [Concomitant]
  2. MOTRIN [Concomitant]
     Active Substance: IBUPROFEN
  3. CLARITIN-D 12 HOUR [Suspect]
     Active Substance: LORATADINE\PSEUDOEPHEDRINE SULFATE
     Indication: SINUS DISORDER
     Route: 048
     Dates: start: 20111221, end: 20120104
  4. ESTRACE (ESTRADIOL) [Concomitant]

REACTIONS (3)
  - Rash [None]
  - Hypersensitivity [None]
  - Pruritus [None]

NARRATIVE: CASE EVENT DATE: 20111222
